FAERS Safety Report 4608212-9 (Version None)
Quarter: 2005Q2

REPORT INFORMATION
  Report Type: 
  Country: None (occurrence: None)
  Receive Date: 20050303
  Receipt Date: 20041124
  Transmission Date: 20051028
  Serious: No
  Sender: FDA-Public Use
  Company Number: 702349

PATIENT
  Age: 44 Year
  Sex: Female
  Weight: 100.6985 kg

DRUGS (6)
  1. AMEVIVE [Suspect]
     Indication: PSORIASIS
     Dosage: .5 ML; QW; IM;  .5 ML; QW; IM
     Route: 030
     Dates: start: 20041202, end: 20040309
  2. AMEVIVE [Suspect]
     Indication: PSORIASIS
     Dosage: .5 ML; QW; IM;  .5 ML; QW; IM
     Route: 030
     Dates: start: 20040415, end: 20040623
  3. SYTHROID [Concomitant]
  4. CELEXA [Concomitant]
  5. GLUCOPHAGE [Concomitant]
  6. ATENOLOL [Concomitant]

REACTIONS (3)
  - DIABETES MELLITUS [None]
  - PSORIASIS [None]
  - STRESS [None]
